FAERS Safety Report 9920653 (Version 6)
Quarter: 2014Q2

REPORT INFORMATION
  Report Type: Report from Study
  Country: AT (occurrence: AT)
  Receive Date: 20140224
  Receipt Date: 20140618
  Transmission Date: 20141212
  Serious: Yes (Hospitalization)
  Sender: FDA-Public Use
  Company Number: AT-EXELIXIS-XL18414004021

PATIENT
  Age: 73 Year
  Sex: Male
  Weight: 70 kg

DRUGS (19)
  1. XL184 [Suspect]
     Indication: PROSTATE CANCER
     Dosage: 60 MG, QD
     Route: 048
     Dates: start: 20131001
  2. XL184 [Suspect]
     Dosage: 40 MG, QD
     Route: 048
     Dates: end: 20140206
  3. XL184 [Suspect]
     Indication: PROSTATE CANCER
     Dosage: 5 MG, BID
     Route: 048
     Dates: start: 20131001, end: 20140206
  4. LEUPROLIDE [Concomitant]
     Indication: PROSTATE CANCER
     Dosage: UNK
     Dates: start: 201212
  5. ZOLEDRONATE [Concomitant]
     Indication: METASTASES TO BONE
     Dosage: UNK
     Dates: start: 20101213
  6. MADOPAR [Concomitant]
     Indication: PARKINSON^S DISEASE
     Dosage: UNK
     Dates: start: 2010
  7. CITALOPRAM [Concomitant]
     Indication: DEPRESSION
     Dosage: UNK
     Dates: start: 2010
  8. ROPINIROL [Concomitant]
     Indication: PARKINSON^S DISEASE
     Dosage: UNK
     Dates: start: 2010
  9. RASAGILINE MESYLATE [Concomitant]
     Indication: PARKINSON^S DISEASE
     Dosage: UNK
     Dates: start: 2010
  10. COLECALCIFEROL [Concomitant]
     Indication: METASTASES TO BONE
     Dosage: UNK
     Dates: start: 201308
  11. ONDANSETRON [Concomitant]
     Indication: NAUSEA
     Dosage: UNK
     Dates: start: 20131017
  12. PANTOPRAZOL [Concomitant]
     Indication: PROPHYLAXIS AGAINST GASTROINTESTINAL ULCER
     Dosage: UNK
     Dates: start: 20131112
  13. RIVAROXABAN [Concomitant]
     Indication: PULMONARY EMBOLISM
     Dosage: UNK
     Dates: start: 20110208
  14. ARTHRO FORMULA 4 [Concomitant]
  15. MOLAXOLE [Concomitant]
  16. POVIDONE IODINE [Concomitant]
  17. ENOXAPARIN [Concomitant]
  18. BURGIT FOOTCARE [Concomitant]
  19. AMANTADIN [Concomitant]
     Dosage: UNK
     Dates: start: 20140211, end: 20140211

REACTIONS (2)
  - Loss of consciousness [Recovered/Resolved]
  - Hydronephrosis [Not Recovered/Not Resolved]
